FAERS Safety Report 8303793-6 (Version None)
Quarter: 2012Q2

REPORT INFORMATION
  Report Type: 
  Country: None (occurrence: None)
  Receive Date: 20120423
  Receipt Date: 20120416
  Transmission Date: 20120825
  Serious: Yes (Hospitalization)
  Sender: FDA-Public Use
  Company Number: PHHY2011DE100711

PATIENT
  Sex: Male
  Weight: 32 kg

DRUGS (2)
  1. RITALIN LA [Suspect]
     Indication: ATTENTION DEFICIT/HYPERACTIVITY DISORDER
     Dosage: 20 MG, QD
     Route: 048
     Dates: start: 20111001, end: 20111114
  2. RITALIN LA [Suspect]
     Dosage: 10 MG, QD
     Route: 048
     Dates: start: 20111115, end: 20111101

REACTIONS (2)
  - DEAFNESS [None]
  - EAR DISCOMFORT [None]
